FAERS Safety Report 10773555 (Version 1)
Quarter: 2015Q1

REPORT INFORMATION
  Report Type: Other
  Country: US (occurrence: US)
  Receive Date: 20150208
  Receipt Date: 20150208
  Transmission Date: 20150721
  Serious: No
  Sender: FDA-Public Use
  Company Number: US-ACORDA-ACO_107498_2014

PATIENT
  Age: 63 Year
  Sex: Female

DRUGS (1)
  1. AMPYRA [Suspect]
     Active Substance: DALFAMPRIDINE
     Indication: PRODUCT USED FOR UNKNOWN INDICATION
     Dosage: 10 MG, Q 12 HRS
     Route: 048
     Dates: start: 201106

REACTIONS (4)
  - Haemoglobin urine present [Unknown]
  - Dysuria [Unknown]
  - Urine abnormality [Unknown]
  - White blood cells urine [Unknown]

NARRATIVE: CASE EVENT DATE: 20141009
